FAERS Safety Report 6670895-X (Version None)
Quarter: 2010Q2

REPORT INFORMATION
  Report Type: 
  Country: None (occurrence: None)
  Receive Date: 20100407
  Receipt Date: 20100323
  Transmission Date: 20101027
  Serious: No
  Sender: FDA-Public Use
  Company Number: US-B.I. PHARMACEUTICALS,INC./RIDGEFIELD-2010-BP-03412BP

PATIENT
  Sex: Female

DRUGS (12)
  1. SPIRIVA [Suspect]
     Indication: ALLERGIC GRANULOMATOUS ANGIITIS
     Dosage: 18 MCG
     Route: 055
     Dates: start: 20070101
  2. SPIRIVA [Suspect]
     Indication: ASTHMA
  3. SPIRIVA [Suspect]
     Indication: HYPERSENSITIVITY
  4. ADVAIR DISKUS 100/50 [Concomitant]
     Indication: ALLERGIC GRANULOMATOUS ANGIITIS
  5. ADVAIR DISKUS 100/50 [Concomitant]
     Indication: ASTHMA
  6. ADVAIR DISKUS 100/50 [Concomitant]
     Indication: HYPERSENSITIVITY
  7. PREDNISONE TAB [Concomitant]
     Indication: ALLERGIC GRANULOMATOUS ANGIITIS
  8. PREDNISONE TAB [Concomitant]
     Indication: ASTHMA
  9. PREDNISONE TAB [Concomitant]
     Indication: HYPERSENSITIVITY
  10. ENALAPRIL MALEATE [Concomitant]
     Indication: HYPERTENSION
  11. OMEPRAZOLE [Concomitant]
     Indication: PROPHYLAXIS
  12. CELLCEPT [Concomitant]
     Indication: ALLERGIC GRANULOMATOUS ANGIITIS

REACTIONS (1)
  - DYSPNOEA [None]
